FAERS Safety Report 7720220-8 (Version None)
Quarter: 2011Q3

REPORT INFORMATION
  Report Type: 
  Country: None (occurrence: None)
  Receive Date: 20110826
  Receipt Date: 20110826
  Transmission Date: 20111222
  Serious: Yes (Other)
  Sender: FDA-Public Use
  Company Number: None

PATIENT
  Age: 57 Year
  Sex: Female
  Weight: 68.0396 kg

DRUGS (2)
  1. WELLBUTRIN XL [Suspect]
     Dosage: 300MG ONCE DAILY ORAL
     Route: 048
     Dates: start: 20090406
  2. WELLBUTRIN XL [Suspect]
     Dosage: 150 MG ONCE DAILY ORAL
     Route: 048
     Dates: start: 20110729

REACTIONS (3)
  - CONDITION AGGRAVATED [None]
  - PRODUCT SUBSTITUTION ISSUE [None]
  - DEPRESSION [None]
